FAERS Safety Report 5531489-2 (Version None)
Quarter: 2007Q4

REPORT INFORMATION
  Report Type: 
  Country: None (occurrence: None)
  Receive Date: 20071203
  Receipt Date: 20071128
  Transmission Date: 20080405
  Serious: Yes (Hospitalization)
  Sender: FDA-Public Use
  Company Number: FR-BRISTOL-MYERS SQUIBB COMPANY-13999255

PATIENT
  Age: 89 Year
  Sex: Female

DRUGS (9)
  1. COUMADIN [Suspect]
     Dates: start: 20061122, end: 20061223
  2. INNOHEP [Suspect]
     Dosage: 1 DOSAGE FORM = 10000 IU/ 0.5 ML.
     Dates: start: 20061223, end: 20070120
  3. AMLOR [Concomitant]
  4. CARDENSIEL [Concomitant]
  5. IRBESARTAN [Concomitant]
  6. NEURONTIN [Concomitant]
  7. PANTOPRAZOLE SODIUM [Concomitant]
  8. ACETAMINOPHEN [Concomitant]
     Dosage: 500 MG UNSPECIFIED DAILY DOSE.
  9. KAYEXALATE [Concomitant]

REACTIONS (4)
  - FALL [None]
  - HAEMATOMA [None]
  - INTERNATIONAL NORMALISED RATIO DECREASED [None]
  - RIB FRACTURE [None]
